FAERS Safety Report 4562308-9 (Version None)
Quarter: 2005Q1

REPORT INFORMATION
  Report Type: 
  Country: None (occurrence: None)
  Receive Date: 20050124
  Receipt Date: 20050106
  Transmission Date: 20050727
  Serious: Yes (Hospitalization)
  Sender: FDA-Public Use
  Company Number: 2005BI000539

PATIENT
  Age: 54 Year
  Sex: Female
  Weight: 78.0187 kg

DRUGS (3)
  1. AVONEX [Suspect]
     Indication: MULTIPLE SCLEROSIS
     Dosage: 30 UG; QW; IM
     Route: 030
     Dates: start: 19990601, end: 20000801
  2. NEURONTIN [Concomitant]
  3. OXYCONTIN [Concomitant]

REACTIONS (4)
  - ARTERIOSPASM CORONARY [None]
  - BLOOD PRESSURE INCREASED [None]
  - INFLUENZA LIKE ILLNESS [None]
  - MYOCARDIAL INFARCTION [None]
